FAERS Safety Report 4759780-8 (Version None)
Quarter: 2005Q3

REPORT INFORMATION
  Report Type: 
  Country: None (occurrence: None)
  Receive Date: 20050829
  Receipt Date: 20050522
  Transmission Date: 20060218
  Serious: No
  Sender: FDA-Public Use
  Company Number: S05-USA-02680-01

PATIENT

DRUGS (2)
  1. CAMPRAL [Suspect]
     Indication: ALCOHOLISM
     Dosage: 666 MG TID PO
     Route: 048
  2. MULTIPLE MEDICATIONS (NOS) [Concomitant]

REACTIONS (2)
  - PRURITUS [None]
  - RASH [None]
